FAERS Safety Report 26185571 (Version 1)
Quarter: 2025Q4

REPORT INFORMATION
  Report Type: Spontaneous
  Country: US (occurrence: US)
  Receive Date: 20251222
  Receipt Date: 20251222
  Transmission Date: 20260118
  Serious: No
  Sender: CELLTRION
  Company Number: US-CELLTRION INC.-2025US015933

PATIENT

DRUGS (11)
  1. RITUXIMAB [Suspect]
     Active Substance: RITUXIMAB
     Indication: Anti-myelin-associated glycoprotein associated polyneuropathy
     Dosage: 375 MG/M2, 1/WEEK, WEEKLY FOR FOUR DOSES
     Dates: start: 202009
  2. RITUXIMAB [Suspect]
     Active Substance: RITUXIMAB
     Dosage: HE UNDERWENT TWO MORE COURSES OF FOUR WEEKLY DOSES OF RITUXIMAB IN JULY 2021 AND SEPTEMBER 2021
     Dates: start: 202107
  3. RITUXIMAB [Suspect]
     Active Substance: RITUXIMAB
     Dosage: HE UNDERWENT TWO MORE COURSES OF FOUR WEEKLY DOSES OF RITUXIMAB IN JULY 2021 AND SEPTEMBER 2021
     Dates: start: 202109
  4. ZANUBRUTINIB [Suspect]
     Active Substance: ZANUBRUTINIB
     Indication: Waldenstrom^s macroglobulinaemia
     Dosage: 320 MG, QD, PRESCRIBED AT 320 MG DAILY ORALLY ONCE A DAY
     Route: 048
     Dates: start: 202302
  5. ZANUBRUTINIB [Suspect]
     Active Substance: ZANUBRUTINIB
     Dosage: 320 MG, QD
     Route: 048
     Dates: start: 20230228
  6. ZANUBRUTINIB [Suspect]
     Active Substance: ZANUBRUTINIB
     Dosage: 320 MG, QD
     Route: 048
     Dates: start: 20230420
  7. ZANUBRUTINIB [Suspect]
     Active Substance: ZANUBRUTINIB
     Dosage: 320 MG, QD
     Route: 048
     Dates: start: 20230712
  8. ZANUBRUTINIB [Suspect]
     Active Substance: ZANUBRUTINIB
     Dosage: 320 MG, QD
     Route: 048
     Dates: start: 20231107
  9. ZANUBRUTINIB [Suspect]
     Active Substance: ZANUBRUTINIB
     Dosage: 320 MG, QD
     Route: 048
     Dates: start: 20240307
  10. DULOXETINE [Suspect]
     Active Substance: DULOXETINE
     Indication: Pain management
  11. PREGABALIN [Suspect]
     Active Substance: PREGABALIN
     Indication: Pain management

REACTIONS (2)
  - Therapeutic response decreased [Unknown]
  - Intentional product use issue [Unknown]
